FAERS Safety Report 4836740-X (Version None)
Quarter: 2005Q4

REPORT INFORMATION
  Report Type: 
  Country: None (occurrence: None)
  Receive Date: 20051123
  Receipt Date: 20051117
  Transmission Date: 20060501
  Serious: Yes (Hospitalization)
  Sender: FDA-Public Use
  Company Number: AU-ABBOTT-05P-008-0317591-00

PATIENT
  Sex: Male
  Weight: 74.5 kg

DRUGS (7)
  1. KALETRA [Suspect]
     Indication: HIV INFECTION
     Route: 048
     Dates: start: 20051012
  2. LAMIVUDINE [Concomitant]
     Indication: HIV INFECTION
     Dates: start: 20051012
  3. VIREAD [Concomitant]
     Indication: HIV INFECTION
     Dates: start: 20051012
  4. ASPRIN [Concomitant]
     Indication: ANTIPHOSPHOLIPID SYNDROME
     Dosage: 100-150MG
     Dates: start: 20051013, end: 20051027
  5. IMODIUM [Concomitant]
     Indication: DIARRHOEA
     Dosage: 1-2 TABS
     Dates: start: 20051013, end: 20051027
  6. IBUPROFEN [Concomitant]
     Indication: HEADACHE
     Dates: start: 20051012, end: 20051017
  7. ACETAMINOPHEN [Concomitant]
     Indication: HEADACHE
     Dates: start: 20051012, end: 20051017

REACTIONS (3)
  - CONFUSIONAL STATE [None]
  - DYSPHAGIA [None]
  - HEMIANOPIA [None]
